FAERS Safety Report 5468349-1 (Version None)
Quarter: 2007Q3

REPORT INFORMATION
  Report Type: 
  Country: None (occurrence: None)
  Receive Date: 20070926
  Receipt Date: 20070917
  Transmission Date: 20080115
  Serious: Yes (Hospitalization)
  Sender: FDA-Public Use
  Company Number: B0482764A

PATIENT
  Age: 57 Year
  Sex: Male

DRUGS (7)
  1. SERETIDE [Suspect]
     Route: 055
     Dates: start: 20070102, end: 20070109
  2. COUMADIN [Suspect]
     Indication: DEEP VEIN THROMBOSIS
     Dosage: 9MG PER DAY
     Route: 048
     Dates: start: 20020101, end: 20070109
  3. PYOSTACINE [Suspect]
     Route: 048
     Dates: start: 20070102, end: 20070109
  4. MOTILIUM [Suspect]
     Route: 048
     Dates: start: 20070102, end: 20070109
  5. ZOLOFT [Suspect]
     Route: 065
  6. ESBERIVEN [Concomitant]
     Route: 065
  7. HEPARIN [Concomitant]
     Route: 065

REACTIONS (2)
  - HYPERHIDROSIS [None]
  - PLEURAL HAEMORRHAGE [None]
